FAERS Safety Report 19837210 (Version 1)
Quarter: 2021Q3

REPORT INFORMATION
  Report Type: Spontaneous
  Country: FR (occurrence: FR)
  Receive Date: 20210915
  Receipt Date: 20210915
  Transmission Date: 20211014
  Serious: Yes (Hospitalization)
  Sender: FDA-Public Use
  Company Number: FR-TEVA-2021-FR-1952911

PATIENT
  Age: 24 Year
  Sex: Female

DRUGS (3)
  1. METRONIDAZOLE (BENZOATE DE) [Suspect]
     Active Substance: METRONIDAZOLE BENZOATE
     Indication: SALPINGITIS
     Dosage: 500MG X2 / DAY
     Route: 042
     Dates: start: 20210703, end: 20210705
  2. DOXYCYCLINE (CHLORHYDRATE DE) [Suspect]
     Active Substance: DOXYCYCLINE HYDROCHLORIDE
     Indication: SALPINGITIS
     Dosage: 100MG X2 / DAY
     Route: 048
     Dates: start: 20210703
  3. ROCEPHINE 1 G, POUDRE POUR SOLUTION INJECTABLE [Suspect]
     Active Substance: CEFTRIAXONE SODIUM
     Indication: SALPINGITIS
     Dosage: 1G / DAY
     Route: 042
     Dates: start: 20210703, end: 20210705

REACTIONS (2)
  - Leukopenia [Not Recovered/Not Resolved]
  - Neutropenia [Not Recovered/Not Resolved]

NARRATIVE: CASE EVENT DATE: 20210705
